FAERS Safety Report 9013486 (Version 1)
Quarter: 2012Q4

REPORT INFORMATION
  Report Type: Spontaneous
  Country: GB (occurrence: None)
  Receive Date: 20121231
  Receipt Date: 20121231
  Transmission Date: 20130627
  Serious: Yes (Hospitalization, Other)
  Sender: FDA-Public Use
  Company Number: CL-461-2012

PATIENT
  Age: 4 Year
  Sex: Male

DRUGS (1)
  1. HALOPERIDOL [Suspect]
     Indication: ACCIDENTAL EXPOSURE TO PRODUCT
     Dosage: UNK to UNK Oral
     Route: 048

REACTIONS (12)
  - Accidental exposure to product by child [None]
  - Dystonia [None]
  - Somnolence [None]
  - Hyperhidrosis [None]
  - Urinary retention [None]
  - Hyperthermia [None]
  - Intention tremor [None]
  - Hyperreflexia [None]
  - Nystagmus [None]
  - Muscle contractions involuntary [None]
  - Tremor [None]
  - Loss of consciousness [None]
